FAERS Safety Report 4652915-7 (Version None)
Quarter: 2005Q2

REPORT INFORMATION
  Report Type: 
  Country: None (occurrence: None)
  Receive Date: 20050503
  Receipt Date: 20050414
  Transmission Date: 20051028
  Serious: Yes (Congenital Anomaly)
  Sender: FDA-Public Use
  Company Number: B0050654A

PATIENT
  Sex: 0

DRUGS (2)
  1. LAMICTAL [Suspect]
     Indication: EPILEPSY
     Dosage: ORAL
     Route: 048
  2. VALPROATE SODIUM [Concomitant]

REACTIONS (7)
  - ABORTED PREGNANCY [None]
  - DRUG EXPOSURE DURING PREGNANCY [None]
  - HYDROCEPHALUS [None]
  - MULTIPLE CONGENITAL ABNORMALITIES [None]
  - PULMONARY HYPOPLASIA [None]
  - SPINA BIFIDA [None]
  - ULTRASOUND ANTENATAL SCREEN ABNORMAL [None]
